FAERS Safety Report 4616460-7 (Version None)
Quarter: 2005Q1

REPORT INFORMATION
  Report Type: 
  Country: None (occurrence: None)
  Receive Date: 20050318
  Receipt Date: 20041201
  Transmission Date: 20050727
  Serious: Yes (Death)
  Sender: FDA-Public Use
  Company Number: 21-732-2004-M0002

PATIENT
  Age: 85 Year
  Sex: Male
  Weight: 65.7716 kg

DRUGS (9)
  1. VANTAS [Suspect]
     Indication: PROSTATE CANCER
     Dosage: 50MG/YEAR, SUBCUTANEOUS
     Route: 058
     Dates: start: 20041118, end: 20041129
  2. AMLODIPINE BESYLATE (NORVASC) [Concomitant]
  3. METOPROLOL SUCCINATE (TOPROL) [Concomitant]
  4. GLYBURIDE [Concomitant]
  5. ENALAPRIL [Concomitant]
  6. LASIX [Concomitant]
  7. ISOSORBIDE [Concomitant]
  8. NITROGLYN 2% OINTMENT [Concomitant]
  9. ASPIRIN [Concomitant]

REACTIONS (2)
  - CARDIOMYOPATHY [None]
  - REFUSAL OF TREATMENT BY PATIENT [None]
